FAERS Safety Report 9330626 (Version 1)
Quarter: 2013Q2

REPORT INFORMATION
  Report Type: Spontaneous
  Country: NL (occurrence: NL)
  Receive Date: 20130605
  Receipt Date: 20130605
  Transmission Date: 20140414
  Serious: Yes (Other)
  Sender: FDA-Public Use
  Company Number: NL-AMGEN-NLDSP2013039368

PATIENT
  Age: 60 Year
  Sex: Female

DRUGS (4)
  1. ENBREL [Suspect]
     Indication: RHEUMATOID ARTHRITIS
     Dosage: 50 MG, WEEKLY
     Dates: start: 201211
  2. METFORMIN [Concomitant]
     Dosage: UNK
  3. PREDNISON [Concomitant]
     Dosage: UNK
  4. MTX                                /00113801/ [Concomitant]
     Dosage: UNK

REACTIONS (1)
  - Hypertension [Unknown]
